FAERS Safety Report 11514128 (Version 1)
Quarter: 2015Q3

REPORT INFORMATION
  Report Type: Spontaneous
  Country: US (occurrence: US)
  Receive Date: 20150903
  Receipt Date: 20150903
  Transmission Date: 20151125
  Serious: No
  Sender: FDA-Public Use
  Company Number: US-ELI_LILLY_AND_COMPANY-US201207004467

PATIENT
  Age: 32 Year
  Sex: Female
  Weight: 62.59 kg

DRUGS (3)
  1. WELLBUTRIN [Concomitant]
     Active Substance: BUPROPION HYDROCHLORIDE
  2. CYMBALTA [Suspect]
     Active Substance: DULOXETINE HYDROCHLORIDE
     Dosage: 60 MG, QD
     Dates: start: 200808
  3. EFFEXOR XR [Concomitant]
     Active Substance: VENLAFAXINE HYDROCHLORIDE
     Dosage: 37.5 MG, QD

REACTIONS (2)
  - Exposure during breast feeding [Recovered/Resolved]
  - Exposure during pregnancy [Recovered/Resolved]

NARRATIVE: CASE EVENT DATE: 20080905
